FAERS Safety Report 16311728 (Version 3)
Quarter: 2019Q3

REPORT INFORMATION
  Report Type: Report from Study
  Country: FR (occurrence: FR)
  Receive Date: 20190514
  Receipt Date: 20190730
  Transmission Date: 20191004
  Serious: Yes (Death, Hospitalization, Other)
  Sender: FDA-Public Use
  Company Number: FR-JAZZ-2019-FR-003679

PATIENT

DRUGS (2)
  1. URSOLVAN [Concomitant]
     Active Substance: URSODIOL
     Indication: VENOOCCLUSIVE LIVER DISEASE
  2. DEFITELIO [Suspect]
     Active Substance: DEFIBROTIDE SODIUM
     Indication: VENOOCCLUSIVE LIVER DISEASE
     Dosage: 21.9 MG/KG, QD
     Route: 042
     Dates: start: 20160420, end: 20160427

REACTIONS (10)
  - Oxygen saturation decreased [Fatal]
  - Incorrect product administration duration [Unknown]
  - Infection [Unknown]
  - Loss of consciousness [Fatal]
  - Underdose [Unknown]
  - Acute myeloid leukaemia recurrent [Fatal]
  - Respiratory disorder [Fatal]
  - Hypotension [Unknown]
  - Muscle twitching [Fatal]
  - Haemorrhage [Unknown]

NARRATIVE: CASE EVENT DATE: 20160420
